FAERS Safety Report 5971457-X (Version None)
Quarter: 2008Q4

REPORT INFORMATION
  Report Type: 
  Country: None (occurrence: None)
  Receive Date: 20081201
  Receipt Date: 20081118
  Transmission Date: 20090506
  Serious: Yes (Hospitalization, Other)
  Sender: FDA-Public Use
  Company Number: US-JNJFOC-20080400140

PATIENT
  Sex: Female
  Weight: 58.51 kg

DRUGS (14)
  1. REMICADE [Suspect]
     Indication: ANKYLOSING SPONDYLITIS
     Dosage: 3 TOTAL TREATMENTS
     Route: 042
  2. REMICADE [Suspect]
     Indication: CROHN'S DISEASE
     Dosage: EARLY TO MID 1990'S
     Route: 042
  3. PRILOSEC [Concomitant]
     Indication: GASTROOESOPHAGEAL REFLUX DISEASE
  4. PREDNISONE TAB [Concomitant]
     Indication: CROHN'S DISEASE
  5. PENTASA [Concomitant]
     Indication: CROHN'S DISEASE
  6. BENTYL [Concomitant]
  7. IMURAN [Concomitant]
  8. SYNTHROID [Concomitant]
  9. CORGARD [Concomitant]
  10. ELAVIL [Concomitant]
  11. ATIVAN [Concomitant]
  12. ZYPREXA [Concomitant]
  13. STEROIDS [Concomitant]
     Indication: CROHN'S DISEASE
  14. ASACOL [Concomitant]
     Indication: CROHN'S DISEASE

REACTIONS (8)
  - ACQUIRED OESOPHAGEAL WEB [None]
  - DEPRESSION [None]
  - ENDOCARDITIS [None]
  - IMPAIRED GASTRIC EMPTYING [None]
  - LUNG ABSCESS [None]
  - PNEUMONIA STAPHYLOCOCCAL [None]
  - STAPHYLOCOCCAL SEPSIS [None]
  - SUICIDAL IDEATION [None]
